FAERS Safety Report 23816462 (Version 2)
Quarter: 2024Q2

REPORT INFORMATION
  Report Type: Spontaneous
  Country: JP (occurrence: JP)
  Receive Date: 20240503
  Receipt Date: 20240506
  Transmission Date: 20240716
  Serious: Yes (Other)
  Sender: FDA-Public Use
  Company Number: JP-Eisai-202401325_LEN-RCC_P_1

PATIENT
  Sex: Male

DRUGS (2)
  1. LENVIMA [Suspect]
     Active Substance: LENVATINIB
     Indication: Renal cell carcinoma
     Route: 048
     Dates: start: 20240416
  2. KEYTRUDA [Suspect]
     Active Substance: PEMBROLIZUMAB
     Indication: Renal cell carcinoma
     Route: 041
     Dates: start: 20240416

REACTIONS (6)
  - Tubulointerstitial nephritis [Unknown]
  - Hepatic function abnormal [Unknown]
  - Rash [Unknown]
  - Platelet count decreased [Unknown]
  - Pyrexia [Unknown]
  - Renal impairment [Unknown]

NARRATIVE: CASE EVENT DATE: 20240401
